FAERS Safety Report 6692175-9 (Version None)
Quarter: 2010Q2

REPORT INFORMATION
  Report Type: 
  Country: None (occurrence: None)
  Receive Date: 20100422
  Receipt Date: 20090814
  Transmission Date: 20101027
  Serious: No
  Sender: FDA-Public Use
  Company Number: US-ASTRAZENECA-2009SE08271

PATIENT
  Age: 95 Year
  Sex: Female
  Weight: 59.9 kg

DRUGS (3)
  1. TOPROL-XL [Suspect]
     Indication: HYPERTENSION
     Dosage: METAPROLOL SUCCINATE- UNKNOWN, DAILY
     Route: 048
  2. TOPROL-XL [Suspect]
     Dosage: TOPROL XL, DAILY
     Route: 048
     Dates: start: 20090601, end: 20090701
  3. TOPROL-XL [Suspect]
     Dosage: METAPROLOL SUCCINATE- UNKNOWN, DAILY
     Route: 048
     Dates: start: 20090701

REACTIONS (5)
  - DIARRHOEA [None]
  - DIZZINESS [None]
  - DYSPNOEA [None]
  - FATIGUE [None]
  - PAIN [None]
